FAERS Safety Report 10043506 (Version 1)
Quarter: 2014Q1

REPORT INFORMATION
  Report Type: Spontaneous
  Country: GB (occurrence: None)
  Receive Date: 20140326
  Receipt Date: 20140326
  Transmission Date: 20141002
  Serious: Yes (Other)
  Sender: FDA-Public Use
  Company Number: 2014-000795

PATIENT
  Sex: 0

DRUGS (1)
  1. ASACOL [Suspect]
     Dosage: UNKNOWN

REACTIONS (1)
  - Intracranial pressure increased [None]
